FAERS Safety Report 6829625-0 (Version None)
Quarter: 2010Q3

REPORT INFORMATION
  Report Type: 
  Country: None (occurrence: None)
  Receive Date: 20100709
  Receipt Date: 20070420
  Transmission Date: 20110219
  Serious: No
  Sender: FDA-Public Use
  Company Number: US-PFIZER INC-2007014991

PATIENT
  Sex: Female

DRUGS (9)
  1. CHANTIX [Suspect]
     Dates: start: 20070221
  2. OMACOR [Concomitant]
  3. IRON [Concomitant]
  4. MAGNESIUM [Concomitant]
  5. CALCIUM CARBONATE [Concomitant]
  6. ZYRTEC [Concomitant]
  7. NASACORT [Concomitant]
  8. ZANTAC [Concomitant]
     Indication: DYSPEPSIA
  9. IBUPROFEN [Concomitant]

REACTIONS (3)
  - ABDOMINAL PAIN [None]
  - NAUSEA [None]
  - SOMNOLENCE [None]
